FAERS Safety Report 23259998 (Version 1)
Quarter: 2023Q4

REPORT INFORMATION
  Report Type: Spontaneous
  Country: CY (occurrence: CY)
  Receive Date: 20231204
  Receipt Date: 20231204
  Transmission Date: 20240110
  Serious: Yes (Other)
  Sender: FDA-Public Use
  Company Number: None

PATIENT
  Age: 43 Year
  Sex: Female

DRUGS (2)
  1. TOPAMAX [Suspect]
     Active Substance: TOPIRAMATE
     Indication: Migraine
     Route: 048
     Dates: start: 20230518, end: 20230712
  2. TOPAMAX [Suspect]
     Active Substance: TOPIRAMATE
     Route: 048
     Dates: start: 20230127, end: 20230309

REACTIONS (8)
  - Arrhythmia [Unknown]
  - Somnolence [Unknown]
  - Hypoaesthesia [Unknown]
  - Fatigue [Unknown]
  - Bradyphrenia [Unknown]
  - Dry mouth [Unknown]
  - Decreased appetite [Unknown]
  - Alopecia [Unknown]

NARRATIVE: CASE EVENT DATE: 20230309
